FAERS Safety Report 12071856 (Version 5)
Quarter: 2022Q1

REPORT INFORMATION
  Report Type: Other
  Country: DE (occurrence: DE)
  Receive Date: 20160212
  Receipt Date: 20220303
  Transmission Date: 20220423
  Serious: Yes (Other)
  Sender: FDA-Public Use
  Company Number: DE-ROCHE-1708167

PATIENT
  Age: 56 Year
  Sex: Male
  Weight: 95 kg

DRUGS (12)
  1. PEGINTERFERON ALFA-2A [Suspect]
     Active Substance: PEGINTERFERON ALFA-2A
     Indication: Hepatitis C
     Route: 058
     Dates: start: 20130709, end: 20140621
  2. COPEGUS [Suspect]
     Active Substance: RIBAVIRIN
     Indication: Hepatitis C
     Route: 048
     Dates: start: 20130709, end: 20140621
  3. TELAPREVIR [Suspect]
     Active Substance: TELAPREVIR
     Indication: Hepatitis C
     Route: 048
     Dates: start: 20130709, end: 20130928
  4. RAMIPRIL [Concomitant]
     Active Substance: RAMIPRIL
     Dates: start: 20100101
  5. CITALOPRAM [Concomitant]
     Active Substance: CITALOPRAM HYDROBROMIDE
     Dates: start: 20130709, end: 20140722
  6. BISOPROLOL [Concomitant]
     Active Substance: BISOPROLOL
     Dates: start: 20061101
  7. ESCHERICHIA COLI\HYDROCORTISONE [Concomitant]
     Active Substance: ESCHERICHIA COLI\HYDROCORTISONE
  8. PANTOPRAZOLE SODIUM [Concomitant]
     Active Substance: PANTOPRAZOLE SODIUM
     Indication: Gastritis
     Dates: start: 20140304
  9. PANTOPRAZOLE SODIUM [Concomitant]
     Active Substance: PANTOPRAZOLE SODIUM
     Indication: Abdominal discomfort
  10. CETIRIZINE HYDROCHLORIDE [Concomitant]
     Active Substance: CETIRIZINE HYDROCHLORIDE
     Dates: start: 20130820, end: 20130906
  11. PASPERTIN [Concomitant]
     Indication: Decreased appetite
     Dates: start: 20130723, end: 20131001
  12. IBUPROFEN [Concomitant]
     Active Substance: IBUPROFEN
     Dates: start: 20130723

REACTIONS (13)
  - Haemorrhoidal haemorrhage [Recovered/Resolved]
  - Gastritis [Recovered/Resolved]
  - Nausea [Not Recovered/Not Resolved]
  - Dry skin [Recovered/Resolved]
  - Pruritus [Recovered/Resolved]
  - Fatigue [Recovered/Resolved]
  - Headache [Recovered/Resolved]
  - Abdominal discomfort [Not Recovered/Not Resolved]
  - Dysuria [Recovered/Resolved]
  - Decreased appetite [Recovering/Resolving]
  - Disturbance in attention [Recovered/Resolved]
  - Taste disorder [Recovered/Resolved]
  - Dyspnoea exertional [Not Recovered/Not Resolved]

NARRATIVE: CASE EVENT DATE: 20130716
